FAERS Safety Report 26140081 (Version 2)
Quarter: 2025Q4

REPORT INFORMATION
  Report Type: Report from Study
  Country: US (occurrence: US)
  Receive Date: 20251210
  Receipt Date: 20251215
  Transmission Date: 20260117
  Serious: No
  Sender: NOVARTIS
  Company Number: US-002147023-NVSC2025US188953

PATIENT
  Sex: Female

DRUGS (1)
  1. KESIMPTA [Suspect]
     Active Substance: OFATUMUMAB
     Indication: Multiple sclerosis
     Dosage: 20 MG, QMO (0.4 ML)
     Route: 058
     Dates: start: 20250106

REACTIONS (3)
  - Visual impairment [Unknown]
  - Vision blurred [Unknown]
  - Product dose omission issue [Unknown]
